FAERS Safety Report 13190770 (Version 3)
Quarter: 2018Q2

REPORT INFORMATION
  Report Type: Spontaneous
  Country: US (occurrence: US)
  Receive Date: 20170206
  Receipt Date: 20180617
  Transmission Date: 20180711
  Serious: Yes (Life-Threatening, Hospitalization)
  Sender: FDA-Public Use
  Company Number: US-BIOGEN-2017BI00352481

PATIENT
  Age: 69 Year
  Sex: Female

DRUGS (2)
  1. AVONEX [Suspect]
     Active Substance: INTERFERON BETA-1A
     Indication: MULTIPLE SCLEROSIS
     Route: 030
     Dates: start: 19970328
  2. AVONEX [Suspect]
     Active Substance: INTERFERON BETA-1A
     Route: 065

REACTIONS (6)
  - Pneumonia [Recovered/Resolved]
  - Colostomy [Unknown]
  - Drug interaction [Recovered/Resolved]
  - Asthenia [Recovered/Resolved]
  - Intestinal operation [Unknown]
  - General physical health deterioration [Recovered/Resolved]

NARRATIVE: CASE EVENT DATE: 201606
